FAERS Safety Report 7437113-6 (Version None)
Quarter: 2011Q2

REPORT INFORMATION
  Report Type: 
  Country: None (occurrence: None)
  Receive Date: 20110426
  Receipt Date: 20110420
  Transmission Date: 20111010
  Serious: Yes (Other)
  Sender: FDA-Public Use
  Company Number: FR-SANOFI-AVENTIS-2011SA024445

PATIENT
  Age: 95 Year
  Sex: Male

DRUGS (12)
  1. DIFFU K [Concomitant]
  2. AMLODIPINE [Suspect]
     Route: 048
     Dates: start: 20090121
  3. KARDEGIC [Concomitant]
  4. FORLAX [Concomitant]
  5. LASIX [Suspect]
     Route: 048
     Dates: start: 20090407
  6. ALDACTONE [Suspect]
     Route: 048
     Dates: start: 20090114
  7. SERESTA [Concomitant]
  8. TAMSULOSIN HCL [Concomitant]
  9. XYZAL [Concomitant]
  10. ACETAMINOPHEN [Concomitant]
  11. IMOVANE [Concomitant]
  12. SERESTA [Concomitant]

REACTIONS (2)
  - HYPONATRAEMIA [None]
  - OEDEMA [None]
